FAERS Safety Report 4999133-0 (Version None)
Quarter: 2006Q2

REPORT INFORMATION
  Report Type: 
  Country: None (occurrence: None)
  Receive Date: 20060509
  Receipt Date: 20060421
  Transmission Date: 20061013
  Serious: Yes (Hospitalization, Other)
  Sender: FDA-Public Use
  Company Number: US200605000894

PATIENT
  Sex: Male

DRUGS (3)
  1. HUMULIN N [Suspect]
     Indication: DIABETES MELLITUS
     Dosage: SEE IMAGE
  2. HUMULIN R [Suspect]
     Indication: DIABETES MELLITUS
     Dosage: 5 U, 2/D
  3. ILETIN [Suspect]
     Indication: DIABETES MELLITUS

REACTIONS (2)
  - ANGINA PECTORIS [None]
  - HYPERTENSION [None]
